FAERS Safety Report 16934011 (Version 1)
Quarter: 2019Q4

REPORT INFORMATION
  Report Type: Spontaneous
  Country: DE (occurrence: DE)
  Receive Date: 20191018
  Receipt Date: 20191018
  Transmission Date: 20200122
  Serious: Yes (Life-Threatening, Hospitalization, Other)
  Sender: FDA-Public Use
  Company Number: DE-EMCURE PHARMACEUTICALS LTD-2019-EPL-0938

PATIENT
  Age: 47 Year
  Sex: Female

DRUGS (12)
  1. FLUOROURACIL. [Suspect]
     Active Substance: FLUOROURACIL
     Indication: DUCTAL ADENOCARCINOMA OF PANCREAS
     Dosage: 12 CYCLE
     Dates: start: 201902, end: 20190716
  2. SODIUM SELENITE [Concomitant]
     Active Substance: SODIUM SELENITE
     Dosage: 1000 MICROGRAM, QD, 1000 ?G AS SHORT INFUSION ON DAYS OF CHEMOTHERAPY
  3. L-CARNITHINE [Concomitant]
     Active Substance: LEVOCARNITINE
     Dosage: 4 G AS SHORT INFUSION
  4. L-CARNITHINE [Concomitant]
     Active Substance: LEVOCARNITINE
     Dosage: 3 GRAM
     Route: 048
  5. LIPEGFILGRASTIM [Suspect]
     Active Substance: LIPEGFILGRASTIM
     Indication: COLONY STIMULATING FACTOR THERAPY
     Dates: start: 201902
  6. COLECALCIFEROL [Concomitant]
     Active Substance: CHOLECALCIFEROL
     Dosage: 3000 INTERNATIONAL UNIT, QD
  7. IRINOTECAN HYDROCHLORIDE. [Suspect]
     Active Substance: IRINOTECAN HYDROCHLORIDE
     Indication: DUCTAL ADENOCARCINOMA OF PANCREAS
     Dosage: 12 CYCLE
     Dates: start: 201902, end: 20190716
  8. SODIUM SELENITE [Concomitant]
     Active Substance: SODIUM SELENITE
     Dosage: 300 MICROGRAM, QD
  9. OXALIPLATIN. [Concomitant]
     Active Substance: OXALIPLATIN
     Indication: DUCTAL ADENOCARCINOMA OF PANCREAS
     Dosage: 12 CYCLE
     Dates: start: 201902, end: 20190716
  10. SODIUM SELENITE [Concomitant]
     Active Substance: SODIUM SELENITE
     Dosage: 300 MICROGRAM
     Route: 048
  11. CALCIUM FOLINATE [Concomitant]
     Active Substance: LEUCOVORIN CALCIUM
     Indication: DUCTAL ADENOCARCINOMA OF PANCREAS
     Dosage: 12 CYCLE
     Dates: start: 201902, end: 20190716
  12. COLIBIOGEN                         /01127901/ [Concomitant]
     Indication: PROPHYLAXIS
     Dosage: 2X1 TEASPOON/D

REACTIONS (4)
  - Thrombocytosis [Recovered/Resolved]
  - Coronary artery thrombosis [Recovered/Resolved]
  - Acute coronary syndrome [Recovered/Resolved]
  - Product use in unapproved indication [Unknown]

NARRATIVE: CASE EVENT DATE: 201902
